FAERS Safety Report 5915158-2 (Version None)
Quarter: 2008Q3

REPORT INFORMATION
  Report Type: 
  Country: None (occurrence: None)
  Receive Date: 20080909
  Receipt Date: 20080414
  Transmission Date: 20090109
  Serious: Yes (Hospitalization)
  Sender: FDA-Public Use
  Company Number: 163-20785-08010492 (0)

PATIENT
  Age: 58 Year
  Sex: Female
  Weight: 74 kg

DRUGS (15)
  1. THALOMID [Suspect]
     Indication: MULTIPLE MYELOMA
     Dosage: 50 MG, EVERY OTHER DAY, ORAL ; 200 MG, DAILY, ORAL
     Route: 048
     Dates: start: 20040406, end: 20071228
  2. THALOMID [Suspect]
     Indication: MULTIPLE MYELOMA
     Dosage: 50 MG, EVERY OTHER DAY, ORAL ; 200 MG, DAILY, ORAL
     Route: 048
     Dates: start: 20071229, end: 20080101
  3. DEXAMETHASONE TAB [Suspect]
     Indication: MULTIPLE MYELOMA
     Dosage: 40-20 MG, ORAL
     Route: 048
     Dates: start: 20040406, end: 20071213
  4. ACYCLOVIR [Suspect]
  5. PROCRIT [Concomitant]
  6. FOLIC ACID (FOLIC ACID) (TABLETS) [Concomitant]
  7. GABAPENTIN [Concomitant]
  8. ZOLOFT [Concomitant]
  9. ASPIRIN [Concomitant]
  10. AREDIA [Concomitant]
  11. BACTRIM DS (BACTRIM) (CAPSULES) [Concomitant]
  12. ZYRTEC [Concomitant]
  13. SYNTHROID [Concomitant]
  14. OXYCODONE (OXYCODONE) (TABLETS) [Concomitant]
  15. RHINOCORT [Concomitant]

REACTIONS (1)
  - PYREXIA [None]
